FAERS Safety Report 6430949-X (Version None)
Quarter: 2009Q4

REPORT INFORMATION
  Report Type: 
  Country: None (occurrence: None)
  Receive Date: 20091106
  Receipt Date: 20091026
  Transmission Date: 20100525
  Serious: Yes (Hospitalization)
  Sender: FDA-Public Use
  Company Number: AT-TEVA-214225ISR

PATIENT
  Age: 75 Year
  Sex: Male

DRUGS (3)
  1. OXALIPLATIN [Suspect]
     Indication: COLON CANCER
     Dates: start: 20090301, end: 20090601
  2. CAPECITABINE [Suspect]
     Route: 048
     Dates: start: 20090301, end: 20090601
  3. ACETYLSALICYLIC ACID [Concomitant]
     Route: 048

REACTIONS (2)
  - BRONCHIECTASIS [None]
  - LUNG INFILTRATION [None]
